FAERS Safety Report 7622507-6 (Version None)
Quarter: 2011Q3

REPORT INFORMATION
  Report Type: 
  Country: None (occurrence: None)
  Receive Date: 20110712
  Receipt Date: 20110704
  Transmission Date: 20111222
  Serious: Yes (Hospitalization)
  Sender: FDA-Public Use
  Company Number: 2011SP028213

PATIENT
  Age: 57 Year
  Sex: Male
  Weight: 65 kg

DRUGS (7)
  1. OMEPRAZOLE [Concomitant]
  2. RIBAVIRIN [Suspect]
     Indication: HEPATITIS C
     Dosage: 1000 MG;QD
     Dates: start: 20100126
  3. VITAMIN B-12 [Concomitant]
  4. PROPRANOLOL [Concomitant]
  5. PEG-INTRON [Suspect]
     Indication: HEPATITIS C
     Dosage: 50 MCG;QW
     Dates: start: 20100126
  6. NEORECORMON [Concomitant]
  7. DIHYDROERGOTAMINE MESYLATE [Concomitant]

REACTIONS (19)
  - BLOOD LACTIC ACID DECREASED [None]
  - PLATELET COUNT DECREASED [None]
  - CARDIAC MURMUR [None]
  - ANAEMIA MACROCYTIC [None]
  - HYPOXIA [None]
  - NIGHT SWEATS [None]
  - PROTHROMBIN TIME PROLONGED [None]
  - DECUBITUS ULCER [None]
  - PYREXIA [None]
  - CHILLS [None]
  - SEPSIS [None]
  - CLOSTRIDIAL INFECTION [None]
  - RESPIRATORY DISTRESS [None]
  - NO THERAPEUTIC RESPONSE [None]
  - HEPATOMEGALY [None]
  - INTERSTITIAL LUNG DISEASE [None]
  - ANAEMIA [None]
  - ALVEOLITIS [None]
  - DIARRHOEA [None]
